FAERS Safety Report 7291827-X (Version None)
Quarter: 2011Q1

REPORT INFORMATION
  Report Type: 
  Country: None (occurrence: None)
  Receive Date: 20110214
  Receipt Date: 20110208
  Transmission Date: 20110831
  Serious: Yes (Other)
  Sender: FDA-Public Use
  Company Number: US-PFIZER INC-2010129028

PATIENT
  Sex: Male
  Weight: 120.18 kg

DRUGS (18)
  1. GLIPIZIDE [Concomitant]
     Dosage: UNK
  2. LISINOPRIL [Concomitant]
     Dosage: UNK
  3. GEMFIBROZIL [Concomitant]
     Dosage: UNK
  4. AMLODIPINE [Concomitant]
     Dosage: UNK
  5. LYRICA [Suspect]
     Indication: FIBROMYALGIA
  6. EFFEXOR XR [Suspect]
     Indication: DEPRESSION
     Dosage: UNK
     Route: 048
     Dates: start: 20040101, end: 20100401
  7. TERAZOSIN [Concomitant]
     Indication: BENIGN PROSTATIC HYPERPLASIA
     Dosage: UNK
  8. ASPIRIN [Concomitant]
     Dosage: UNK
  9. LASIX [Concomitant]
     Dosage: UNK
  10. OMEPRAZOLE [Concomitant]
     Dosage: UNK
  11. NORCO [Concomitant]
     Dosage: 10/325 MG, UNK
  12. CRESTOR [Concomitant]
     Dosage: UNK
  13. TRAMADOL [Concomitant]
     Dosage: UNK
  14. METFORMIN [Concomitant]
     Indication: DIABETES MELLITUS
     Dosage: UNK
  15. GLUCOTROL XL [Concomitant]
     Indication: DIABETES MELLITUS
     Dosage: UNK
  16. LYRICA [Suspect]
     Indication: DIABETIC NEUROPATHY
     Dosage: 75 MG, 1X/DAY
     Route: 048
     Dates: start: 20080101
  17. EFFEXOR [Suspect]
     Dosage: UNK
  18. ATENOLOL [Concomitant]
     Dosage: UNK

REACTIONS (9)
  - PANIC ATTACK [None]
  - ANXIETY [None]
  - HYPOAESTHESIA [None]
  - BLOOD CHOLESTEROL ABNORMAL [None]
  - DEPRESSION [None]
  - BIPOLAR DISORDER [None]
  - PARAESTHESIA [None]
  - AGITATION [None]
  - MALAISE [None]
